FAERS Safety Report 10256766 (Version 1)
Quarter: 2014Q2

REPORT INFORMATION
  Report Type: Spontaneous
  Country: BR (occurrence: BR)
  Receive Date: 20140624
  Receipt Date: 20140624
  Transmission Date: 20141212
  Serious: Yes (Other)
  Sender: FDA-Public Use
  Company Number: BR-ABBVIE-14P-020-1249048-00

PATIENT
  Age: 58 Year
  Sex: Female
  Weight: 64 kg

DRUGS (11)
  1. HUMIRA [Suspect]
     Indication: RHEUMATOID ARTHRITIS
     Route: 058
     Dates: start: 20131022, end: 20131217
  2. HUMIRA [Suspect]
     Route: 058
     Dates: start: 20140403
  3. CORTISONE [Concomitant]
     Indication: RHEUMATOID ARTHRITIS
     Dosage: IN THE MORNING / AT NIGHT
     Route: 048
     Dates: start: 201404
  4. METHOTREXATE [Concomitant]
     Indication: RHEUMATOID ARTHRITIS
     Dosage: ON TUESDAYS
     Route: 048
     Dates: start: 201404
  5. FOLIC ACID [Concomitant]
     Indication: RHEUMATOID ARTHRITIS
     Route: 048
     Dates: start: 201404
  6. BUPROPION HYDROCHLORIDE [Concomitant]
     Indication: EX-TOBACCO USER
     Dosage: IN THE MORNING / AT NIGHT
     Route: 048
     Dates: start: 201405
  7. BROMAZEPAM [Concomitant]
     Indication: SLEEP DISORDER THERAPY
     Dosage: AT NIGHT
     Route: 048
     Dates: start: 201405
  8. BROMAZEPAM [Concomitant]
     Indication: EX-TOBACCO USER
  9. PONDERA [Concomitant]
     Indication: PANIC DISORDER
     Dosage: ACCORDING TO THE EMOTIONAL CONDITION
     Dates: start: 2004
  10. OMEPRAZOLE [Concomitant]
     Indication: GASTRIC DISORDER
     Dosage: 1 OR 2 TABLETS A DAY: AS NEEDED
     Route: 048
  11. OMEPRAZOLE [Concomitant]
     Indication: PROPHYLAXIS

REACTIONS (8)
  - Dental caries [Recovered/Resolved]
  - Device related infection [Recovered/Resolved]
  - Sinusitis [Recovered/Resolved]
  - Arthralgia [Recovered/Resolved]
  - Spinal pain [Recovered/Resolved]
  - Abdominal pain upper [Recovered/Resolved]
  - Pain in extremity [Recovered/Resolved]
  - Device failure [Unknown]
